FAERS Safety Report 20483005 (Version 1)
Quarter: 2022Q1

REPORT INFORMATION
  Report Type: Report from Study
  Country: US (occurrence: US)
  Receive Date: 20220217
  Receipt Date: 20220217
  Transmission Date: 20220424
  Serious: Yes (Death, Other)
  Sender: FDA-Public Use
  Company Number: US-INSMED, INC.-2021-09123-US

PATIENT
  Sex: Female

DRUGS (4)
  1. ARIKAYCE [Suspect]
     Active Substance: AMIKACIN
     Indication: Mycobacterium avium complex infection
     Dosage: 590 MILLIGRAM, QD
     Route: 055
     Dates: start: 20210722, end: 20210729
  2. ARIKAYCE [Suspect]
     Active Substance: AMIKACIN
     Dosage: 590 MILLIGRAM, TIW
     Route: 055
     Dates: start: 202108, end: 2021
  3. ARIKAYCE [Suspect]
     Active Substance: AMIKACIN
     Dosage: 590 MILLIGRAM, QD
     Route: 055
     Dates: start: 20210920, end: 20211001
  4. ARIKAYCE [Suspect]
     Active Substance: AMIKACIN
     Dosage: 295 MILLIGRAM, QD
     Route: 055
     Dates: start: 20211008, end: 20220106

REACTIONS (24)
  - Death [Fatal]
  - Amnesia [Not Recovered/Not Resolved]
  - Choking [Not Recovered/Not Resolved]
  - Gastrointestinal disorder [Unknown]
  - Renal disorder [Unknown]
  - Eye disorder [Unknown]
  - Seasonal allergy [Unknown]
  - Nasopharyngitis [Unknown]
  - Urinary incontinence [Not Recovered/Not Resolved]
  - Fall [Unknown]
  - Bladder disorder [Not Recovered/Not Resolved]
  - Anxiety [Unknown]
  - Dysphonia [Recovered/Resolved]
  - Dysphonia [Recovered/Resolved]
  - Asthenia [Not Recovered/Not Resolved]
  - Oropharyngeal pain [Recovered/Resolved]
  - Oropharyngeal pain [Recovered/Resolved]
  - Cough [Not Recovered/Not Resolved]
  - Dysphonia [Unknown]
  - Diarrhoea [Unknown]
  - Hypoacusis [Unknown]
  - Off label use [Unknown]
  - Prescribed underdose [Unknown]
  - Therapy interrupted [Unknown]

NARRATIVE: CASE EVENT DATE: 20210101
